FAERS Safety Report 7059900-9 (Version None)
Quarter: 2010Q4

REPORT INFORMATION
  Report Type: 
  Country: None (occurrence: None)
  Receive Date: 20101025
  Receipt Date: 20101019
  Transmission Date: 20110411
  Serious: Yes (Life-Threatening, Hospitalization)
  Sender: FDA-Public Use
  Company Number: PHHY2010BG70159

PATIENT
  Sex: Male

DRUGS (4)
  1. LESCOL XL [Suspect]
     Indication: BLOOD CHOLESTEROL INCREASED
     Dosage: 80 MG, QD
     Route: 048
     Dates: end: 20100701
  2. INVEGA [Concomitant]
     Dosage: UNK
  3. ZOPICLONE [Concomitant]
     Dosage: UNK
  4. XYZAL [Concomitant]
     Dosage: UNK

REACTIONS (17)
  - ALANINE AMINOTRANSFERASE INCREASED [None]
  - ANXIETY [None]
  - ASPARTATE AMINOTRANSFERASE INCREASED [None]
  - BLOOD CREATINE PHOSPHOKINASE INCREASED [None]
  - BRAIN OEDEMA [None]
  - CHROMATURIA [None]
  - COMA [None]
  - DECUBITUS ULCER [None]
  - DEMENTIA [None]
  - DYSLIPIDAEMIA [None]
  - GAMMA-GLUTAMYLTRANSFERASE INCREASED [None]
  - HYPERSENSITIVITY [None]
  - HYPERTENSION [None]
  - MUSCULAR WEAKNESS [None]
  - MYOGLOBIN BLOOD INCREASED [None]
  - PARAESTHESIA [None]
  - RHABDOMYOLYSIS [None]
